FAERS Safety Report 13486305 (Version 2)
Quarter: 2017Q3

REPORT INFORMATION
  Report Type: Spontaneous
  Country: GB (occurrence: GB)
  Receive Date: 20170426
  Receipt Date: 20170807
  Transmission Date: 20171127
  Serious: Yes (Disabling, Other)
  Sender: FDA-Public Use
  Company Number: GB-TEVA-761226ACC

PATIENT
  Age: 80 Year
  Sex: Female
  Weight: 80 kg

DRUGS (21)
  1. COLGATE DURAPHAT [Concomitant]
     Active Substance: SODIUM FLUORIDE
     Dosage: USE AS DIRECTED.
     Dates: start: 20170228
  2. GLANDOSANE [Concomitant]
     Dosage: USE AS DIRECTED.
     Dates: start: 20170228
  3. HUMULIN M3 [Concomitant]
     Active Substance: INSULIN HUMAN
     Dosage: USE AS DIRECTED.
     Dates: start: 20170228
  4. BISOPROLOL [Concomitant]
     Active Substance: BISOPROLOL
     Dosage: 1 DOSAGE FORMS DAILY;
     Dates: start: 20160916
  5. METFORMIN [Concomitant]
     Active Substance: METFORMIN HYDROCHLORIDE
     Dosage: 1 DOSAGE FORMS DAILY;
     Dates: start: 20160916
  6. CLINDAMYCIN. [Suspect]
     Active Substance: CLINDAMYCIN
     Dates: start: 20170222
  7. ATORVASTATIN [Concomitant]
     Active Substance: ATORVASTATIN
     Dosage: 1 DOSAGE FORMS DAILY;
     Dates: start: 20160916
  8. ENALAPRIL [Concomitant]
     Active Substance: ENALAPRIL
     Dosage: 1 DOSAGE FORMS DAILY;
     Dates: start: 20160916, end: 20170228
  9. FERROUS SULFATE. [Concomitant]
     Active Substance: FERROUS SULFATE
     Dosage: 1 DOSAGE FORMS DAILY;
     Dates: start: 20170228
  10. GLICLAZIDE [Concomitant]
     Active Substance: GLICLAZIDE
     Dosage: 4 DOSAGE FORMS DAILY;
     Dates: start: 20160916
  11. OMEPRAZOLE. [Concomitant]
     Active Substance: OMEPRAZOLE
     Dosage: 1 DOSAGE FORMS DAILY;
     Dates: start: 20160916
  12. RANITIDINE. [Concomitant]
     Active Substance: RANITIDINE
     Dosage: 2 DOSAGE FORMS DAILY;
     Dates: start: 20160916, end: 20170228
  13. LINAGLIPTIN [Concomitant]
     Active Substance: LINAGLIPTIN
     Dosage: 1 DOSAGE FORMS DAILY;
     Dates: start: 20160916
  14. ASPIRIN. [Concomitant]
     Active Substance: ASPIRIN
     Dosage: 1 DOSAGE FORMS DAILY;
     Dates: start: 20161024
  15. NOVOMIX [Concomitant]
     Active Substance: INSULIN ASPART
     Dosage: WITH MAIN MEALS.
     Dates: start: 20170127, end: 20170228
  16. PIOGLITAZONE. [Concomitant]
     Active Substance: PIOGLITAZONE
     Dosage: 1 DOSAGE FORMS DAILY;
     Dates: start: 20160916, end: 20170224
  17. CO-AMOXICLAV [Concomitant]
     Active Substance: AMOXICILLIN\CLAVULANIC ACID
     Dosage: 3 DOSAGE FORMS DAILY;
     Dates: start: 20170306, end: 20170313
  18. AMLODIPINE [Concomitant]
     Active Substance: AMLODIPINE BESYLATE
     Dosage: 1 DOSAGE FORMS DAILY;
     Dates: start: 20160916, end: 20170228
  19. FUROSEMIDE. [Concomitant]
     Active Substance: FUROSEMIDE
     Dosage: 1 DOSAGE FORMS DAILY; EACH MORNING.
     Dates: start: 20160916, end: 20170228
  20. NAFTIDROFURYL OXALATE [Concomitant]
     Active Substance: NAFRONYL OXALATE
     Dosage: 6 DOSAGE FORMS DAILY;
     Dates: start: 20160916
  21. DULOXETINE. [Concomitant]
     Active Substance: DULOXETINE
     Dosage: 1 DOSAGE FORMS DAILY;
     Dates: start: 20160916

REACTIONS (2)
  - Swelling [Recovered/Resolved]
  - Malaise [Recovered/Resolved]

NARRATIVE: CASE EVENT DATE: 20170404
